FAERS Safety Report 8407634 (Version 4)
Quarter: 2013Q2

REPORT INFORMATION
  Report Type: Spontaneous
  Country: US (occurrence: None)
  Receive Date: 20111227
  Receipt Date: 20120703
  Transmission Date: 20140414
  Serious: No
  Sender: FDA-Public Use
  Company Number: PHHY2011US44777

PATIENT
  Age: 45 Year
  Sex: Female

DRUGS (9)
  1. GILENYA [Suspect]
     Indication: MULTIPLE SCLEROSIS
     Route: 048
     Dates: start: 20110506
  2. MUSCLE RELAXANTS [Concomitant]
  3. BALOFEN (BACLOFEN) [Concomitant]
  4. YASMIN (DROSPIRENONE, ETHINYLESTRADIOL) [Concomitant]
  5. VITAMINS NOS (VITAMINS NOS) [Concomitant]
  6. FISH OIL (FISH OIL) [Concomitant]
  7. BIOTIN (BIOTIN) [Concomitant]
  8. VITAMIN D (ERGOCALCIFEROL) [Concomitant]
  9. FAMPRIDINE (FAMPRIDINE) [Concomitant]

REACTIONS (7)
  - FATIGUE [None]
  - Balance disorder [None]
  - GAIT DISTURBANCE [None]
  - ASTHENIA [None]
  - Insomnia [None]
  - Disturbance in attention [None]
  - Dizziness [None]
